FAERS Safety Report 4748625-8 (Version None)
Quarter: 2005Q3

REPORT INFORMATION
  Report Type: 
  Country: None (occurrence: None)
  Receive Date: 20050817
  Receipt Date: 20050815
  Transmission Date: 20060218
  Serious: Yes (Death, Life-Threatening)
  Sender: FDA-Public Use
  Company Number: 2005US001095

PATIENT
  Age: 57 Year
  Sex: Male
  Weight: 145.1 kg

DRUGS (2)
  1. ADENOSCAN [Suspect]
     Indication: SCAN MYOCARDIAL PERFUSION
     Dosage: TOTAL DOSE
     Dates: start: 20050810, end: 20050810
  2. CARDIOLITE [Concomitant]

REACTIONS (3)
  - CARDIO-RESPIRATORY ARREST [None]
  - INFUSION RELATED REACTION [None]
  - RESPIRATORY DISTRESS [None]
